FAERS Safety Report 8241251-8 (Version None)
Quarter: 2012Q1

REPORT INFORMATION
  Report Type: 
  Country: None (occurrence: None)
  Receive Date: 20120328
  Receipt Date: 20120323
  Transmission Date: 20120608
  Serious: No
  Sender: FDA-Public Use
  Company Number: US-PFIZER INC-2012076140

PATIENT
  Sex: Female
  Weight: 63.5 kg

DRUGS (3)
  1. PRILOSEC [Concomitant]
     Dosage: UNK, 1X/DAY
  2. PREMARIN [Suspect]
     Indication: HOT FLUSH
     Dosage: UNK
     Route: 048
     Dates: start: 19910101, end: 20080101
  3. PREMARIN [Suspect]
     Indication: ATROPHIC VULVOVAGINITIS
     Dosage: UNK, 1X/DAY
     Route: 067
     Dates: start: 20090101

REACTIONS (4)
  - VITAMIN D DECREASED [None]
  - HOT FLUSH [None]
  - FATIGUE [None]
  - DRUG EFFECT DECREASED [None]
